FAERS Safety Report 5197823-0 (Version None)
Quarter: 2006Q4

REPORT INFORMATION
  Report Type: 
  Country: None (occurrence: None)
  Receive Date: 20061228
  Receipt Date: 20061219
  Transmission Date: 20070319
  Serious: Yes (Death)
  Sender: FDA-Public Use
  Company Number: GXKR2006US08276

PATIENT
  Age: 32 Year
  Sex: Male

DRUGS (3)
  1. FENTANYL [Suspect]
  2. OXYCODONE HYDROCHLORIDE [Suspect]
  3. FLUOXETINE [Suspect]

REACTIONS (3)
  - ACCIDENTAL POISONING [None]
  - DYSPNOEA [None]
  - OEDEMA [None]
